FAERS Safety Report 9086074 (Version 3)
Quarter: 2013Q2

REPORT INFORMATION
  Report Type: Spontaneous
  Country: US (occurrence: US)
  Receive Date: 20130201
  Receipt Date: 20130415
  Transmission Date: 20140414
  Serious: No
  Sender: FDA-Public Use
  Company Number: US-PFIZER INC-2013040399

PATIENT
  Age: 44 Year
  Sex: Male

DRUGS (5)
  1. LYRICA [Suspect]
     Indication: NEUROPATHY PERIPHERAL
     Dosage: 100 MG, 3X/DAY
     Route: 048
     Dates: start: 20121002
  2. MS CONTIN [Concomitant]
     Dosage: 60 MG, 2X/DAY
  3. MORPHINE SULFATE [Concomitant]
     Indication: PAIN
     Dosage: 30 MG, 3X/DAY
     Dates: start: 201211, end: 201304
  4. CARISOPRODOL [Concomitant]
     Indication: MUSCLE SPASMS
     Dosage: 350 MG, 3X/DAY
     Dates: start: 2010, end: 201303
  5. NORCO [Concomitant]
     Indication: PAIN
     Dosage: 10/325, 4/D AS NEEDED
     Dates: start: 2010, end: 201304

REACTIONS (3)
  - Pain [Unknown]
  - Insomnia [Unknown]
  - Hyperaesthesia [Unknown]
